FAERS Safety Report 6419863-3 (Version None)
Quarter: 2009Q4

REPORT INFORMATION
  Report Type: 
  Country: None (occurrence: None)
  Receive Date: 20091013
  Receipt Date: 20081009
  Transmission Date: 20100525
  Serious: Yes (Other)
  Sender: FDA-Public Use
  Company Number: 1000001199

PATIENT

DRUGS (1)
  1. LEXAPRO [Suspect]
     Dosage: 10 MG (DAILY), ORAL : 20 MG (DAILY), ORAL
     Route: 048

REACTIONS (1)
  - SUICIDAL IDEATION [None]
